FAERS Safety Report 20177179 (Version 2)
Quarter: 2021Q4

REPORT INFORMATION
  Report Type: Spontaneous
  Country: US (occurrence: US)
  Receive Date: 20211213
  Receipt Date: 20211220
  Transmission Date: 20220303
  Serious: Yes (Hospitalization, Other)
  Sender: FDA-Public Use
  Company Number: US-PFIZER INC-202101700362

PATIENT
  Age: 83 Year
  Sex: Male
  Weight: 87 kg

DRUGS (9)
  1. ZITHROMAX [Suspect]
     Active Substance: AZITHROMYCIN DIHYDRATE
     Dosage: UNK
  2. JAKAFI [Suspect]
     Active Substance: RUXOLITINIB
     Indication: Myelofibrosis
     Dosage: 10 MG, 2X/DAY
     Route: 048
     Dates: start: 20210518
  3. NAVITOCLAX [Suspect]
     Active Substance: NAVITOCLAX
     Indication: Myelofibrosis
     Dosage: 1 IN 1 D
     Route: 048
     Dates: start: 20210518, end: 20211018
  4. CEFTRIAXONE SODIUM [Suspect]
     Active Substance: CEFTRIAXONE SODIUM
     Dosage: UNK
  5. GINKGO [Concomitant]
     Active Substance: GINKGO
     Dosage: UNK
     Dates: start: 2017
  6. TAMSULOSIN [Concomitant]
     Active Substance: TAMSULOSIN
     Dosage: UNK
     Dates: start: 2001
  7. AREDS 2 VISUAL ADVANTAGE [Concomitant]
     Dosage: UNK
     Dates: start: 2021
  8. GLUCOSAMINE + CHONDROITIN WITH MSM [CHONDROITIN SULFATE;GLUCOSAMINE;ME [Concomitant]
     Dosage: UNK
     Dates: start: 2001
  9. MAGNESIUM CHLORIDE [Concomitant]
     Active Substance: MAGNESIUM CHLORIDE
     Dosage: UNK
     Dates: start: 2017

REACTIONS (2)
  - Pneumonia [Recovered/Resolved]
  - Hypoxia [Recovering/Resolving]

NARRATIVE: CASE EVENT DATE: 20211018
